FAERS Safety Report 5481669-X (Version None)
Quarter: 2007Q3

REPORT INFORMATION
  Report Type: 
  Country: None (occurrence: None)
  Receive Date: 20070913
  Receipt Date: 20060801
  Transmission Date: 20080115
  Serious: Yes (Other)
  Sender: FDA-Public Use
  Company Number: PHEH2006US09558

PATIENT
  Age: 67 Year
  Sex: Male

DRUGS (3)
  1. DIOVAN [Suspect]
     Indication: HYPERTENSION
     Dosage: 160 MG, QD, ORAL; 80 MG. QD, ORAL
     Route: 048
     Dates: start: 20021001
  2. DIOVAN [Suspect]
     Indication: HYPERTENSION
     Dosage: 160 MG, QD, ORAL; 80 MG. QD, ORAL
     Route: 048
     Dates: start: 20060701
  3. ZAROXOYN (METOLAZONE) [Concomitant]

REACTIONS (2)
  - FLUID RETENTION [None]
  - HYPOTENSION [None]
